FAERS Safety Report 5747252-3 (Version None)
Quarter: 2008Q3

REPORT INFORMATION
  Report Type: 
  Country: None (occurrence: None)
  Receive Date: 20080520
  Receipt Date: 20080512
  Transmission Date: 20090109
  Serious: Yes (Death)
  Sender: FDA-Public Use
  Company Number: 2008-177249-NL

PATIENT
  Age: 66 Year
  Sex: Female

DRUGS (6)
  1. MIRTAZAPINE [Suspect]
     Dosage: DF
  2. AMITRIPTYLINE HCL [Suspect]
     Dosage: DF
  3. ANADIN EXTRA [Suspect]
     Dosage: DF
  4. DILTIAZEM [Suspect]
     Dosage: DF
  5. ZOPICLONE [Suspect]
     Indication: SLEEP DISORDER
     Dosage: 7.5 MG QD ORAL
     Route: 048
  6. ASPIRIN [Concomitant]

REACTIONS (5)
  - COMPLETED SUICIDE [None]
  - DRUG SCREEN POSITIVE [None]
  - HEPATIC STEATOSIS [None]
  - MULTIPLE DRUG OVERDOSE INTENTIONAL [None]
  - PULMONARY OEDEMA [None]
